FAERS Safety Report 17354293 (Version 2)
Quarter: 2020Q1

REPORT INFORMATION
  Report Type: Spontaneous
  Country: US (occurrence: US)
  Receive Date: 20200131
  Receipt Date: 20200206
  Transmission Date: 20200409
  Serious: No
  Sender: FDA-Public Use
  Company Number: US-JNJFOC-20200140800

PATIENT
  Sex: Female

DRUGS (9)
  1. POTASSIUM [Concomitant]
     Active Substance: POTASSIUM
  2. TREMFYA [Suspect]
     Active Substance: GUSELKUMAB
     Indication: PSORIASIS
     Route: 058
  3. OMEPRAZOLE. [Concomitant]
     Active Substance: OMEPRAZOLE
  4. VITAMIN B12 [Concomitant]
     Active Substance: CYANOCOBALAMIN
  5. METOPROLOL. [Concomitant]
     Active Substance: METOPROLOL
  6. INDAPAMIDE. [Concomitant]
     Active Substance: INDAPAMIDE
  7. VITAMIN D [Concomitant]
     Active Substance: VITAMIN D NOS
  8. ASPIRIN. [Concomitant]
     Active Substance: ASPIRIN
  9. OXYBUTYNINUM [Concomitant]

REACTIONS (2)
  - Wrong technique in product usage process [Unknown]
  - Underdose [Unknown]
